FAERS Safety Report 24845493 (Version 2)
Quarter: 2025Q1

REPORT INFORMATION
  Report Type: Other
  Country: CA (occurrence: CA)
  Receive Date: 20250115
  Receipt Date: 20250129
  Transmission Date: 20250408
  Serious: No
  Sender: TOLMAR
  Company Number: CA-20241230-28fbff

PATIENT
  Sex: Male

DRUGS (4)
  1. ELIGARD [Suspect]
     Active Substance: LEUPROLIDE ACETATE
     Indication: Prostate cancer
     Dosage: 30 MILLIGRAM, Q 4 MONTH
     Route: 058
     Dates: start: 20240910
  2. ELIGARD [Suspect]
     Active Substance: LEUPROLIDE ACETATE
     Dosage: 30 MILLIGRAM, Q 4 MONTH
     Route: 058
     Dates: start: 20241230
  3. ELIGARD [Suspect]
     Active Substance: LEUPROLIDE ACETATE
     Indication: Prostate cancer
     Route: 058
  4. UNSPECIFIED INGREDIENT [Concomitant]
     Active Substance: UNSPECIFIED INGREDIENT
     Indication: Product used for unknown indication
     Dosage: UNK, Q 3 WEEK
     Dates: end: 20240807

REACTIONS (3)
  - Blood pressure fluctuation [Unknown]
  - Hot flush [Unknown]
  - Fatigue [Unknown]
